FAERS Safety Report 9333712 (Version 1)
Quarter: 2013Q2

REPORT INFORMATION
  Report Type: Spontaneous
  Country: US (occurrence: US)
  Receive Date: 20130606
  Receipt Date: 20130606
  Transmission Date: 20140414
  Serious: No
  Sender: FDA-Public Use
  Company Number: US-AMGEN-USASP2012082102

PATIENT
  Age: 70 Year
  Sex: Female
  Weight: 54.55 kg

DRUGS (1)
  1. PROLIA [Suspect]
     Indication: OSTEOPOROSIS POSTMENOPAUSAL
     Dosage: UNK
     Dates: start: 20111230

REACTIONS (7)
  - Pain [Unknown]
  - Myalgia [Unknown]
  - Nasopharyngitis [Unknown]
  - Infection susceptibility increased [Unknown]
  - Back pain [Unknown]
  - Arthralgia [Unknown]
  - Rash [Unknown]
